APPROVED DRUG PRODUCT: DROSPIRENONE AND ETHINYL ESTRADIOL
Active Ingredient: DROSPIRENONE; ETHINYL ESTRADIOL
Strength: 3MG;0.03MG
Dosage Form/Route: TABLET;ORAL-28
Application: A205876 | Product #001
Applicant: APOTEX INC
Approved: Sep 21, 2016 | RLD: No | RS: No | Type: DISCN